FAERS Safety Report 8546560-0 (Version None)
Quarter: 2012Q3

REPORT INFORMATION
  Report Type: 
  Country: None (occurrence: None)
  Receive Date: 20120727
  Receipt Date: 20120203
  Transmission Date: 20120928
  Serious: No
  Sender: FDA-Public Use
  Company Number: US-ASTRAZENECA-2011SE78209

PATIENT
  Age: 25 Year
  Sex: Female

DRUGS (4)
  1. SEROQUEL [Suspect]
     Route: 048
  2. MIGRAINE MEDICATION [Concomitant]
  3. SEROQUEL [Suspect]
     Dosage: AT THE NIGHT
     Route: 048
  4. SEROQUEL [Suspect]
     Dosage: IN THE MORNING
     Route: 048
     Dates: start: 20080101

REACTIONS (2)
  - FATIGUE [None]
  - DRUG EFFECT DECREASED [None]
